FAERS Safety Report 5737953-5 (Version None)
Quarter: 2008Q2

REPORT INFORMATION
  Report Type: 
  Country: None (occurrence: None)
  Receive Date: 20080512
  Receipt Date: 20080512
  Transmission Date: 20081010
  Serious: Yes (Hospitalization)
  Sender: FDA-Public Use
  Company Number: None

PATIENT
  Sex: Female
  Weight: 47.3 kg

DRUGS (9)
  1. RAPAMYCIN (SIROLIMUS, RAPAMUNE) [Suspect]
     Dosage: 9999 MG
  2. TACROLIMUS [Suspect]
     Dosage: 99999 MG
  3. CYCLOPHOSPHAMIDE [Suspect]
     Dosage: 4960 MG
  4. METHOTREXATE [Suspect]
     Dosage: 25.7 MG
  5. THIOTEPA [Suspect]
     Dosage: 412 MG
  6. BACTRIM [Concomitant]
  7. ISRADIPINE [Concomitant]
  8. VALTREX [Concomitant]
  9. VFEND [Concomitant]

REACTIONS (3)
  - PERICARDIAL EFFUSION [None]
  - PLEURAL EFFUSION [None]
  - SEROSITIS [None]
